FAERS Safety Report 4354423-X (Version None)
Quarter: 2004Q2

REPORT INFORMATION
  Report Type: 
  Country: None (occurrence: None)
  Receive Date: 20040503
  Receipt Date: 20040419
  Transmission Date: 20050107
  Serious: Yes (Other)
  Sender: FDA-Public Use
  Company Number: 2004016094

PATIENT
  Age: 45 Year
  Sex: Male

DRUGS (2)
  1. NEURONTIN [Suspect]
     Indication: NEUROPATHIC PAIN
     Dosage: 900 MG (DAILY), ORAL
     Route: 048
  2. OLANZAPINE [Concomitant]

REACTIONS (1)
  - RETINAL DETACHMENT [None]
